FAERS Safety Report 11258337 (Version 1)
Quarter: 2015Q3

REPORT INFORMATION
  Report Type: Spontaneous
  Country: US (occurrence: US)
  Receive Date: 20150710
  Receipt Date: 20150710
  Transmission Date: 20151125
  Serious: No
  Sender: FDA-Public Use
  Company Number: US-ELI_LILLY_AND_COMPANY-US201207003678

PATIENT
  Age: 77 Year
  Sex: Female

DRUGS (2)
  1. FORTEO [Suspect]
     Active Substance: TERIPARATIDE
     Indication: OSTEOPOROSIS
     Dosage: 20 UG, QD
     Route: 065
     Dates: start: 20120706, end: 20120706
  2. FORTEO [Suspect]
     Active Substance: TERIPARATIDE
     Dosage: 20 UG, QD
     Route: 065
     Dates: start: 20150707

REACTIONS (6)
  - Pain [Recovered/Resolved]
  - Heart rate increased [Unknown]
  - Pain in jaw [Recovered/Resolved]
  - Anxiety [Unknown]
  - Pain in extremity [Unknown]
  - Dysstasia [Unknown]

NARRATIVE: CASE EVENT DATE: 20120706
